FAERS Safety Report 7907132-1 (Version None)
Quarter: 2011Q4

REPORT INFORMATION
  Report Type: 
  Country: None (occurrence: None)
  Receive Date: 20111110
  Receipt Date: 20110204
  Transmission Date: 20120403
  Serious: No
  Sender: FDA-Public Use
  Company Number: US-ASTRAZENECA-2011SE06676

PATIENT
  Age: 68 Year
  Sex: Male

DRUGS (2)
  1. CRESTOR [Suspect]
     Indication: HYPERCHOLESTEROLAEMIA
     Route: 048
     Dates: start: 20100805
  2. LISINOPRIL [Suspect]
     Route: 048
     Dates: start: 20100101

REACTIONS (2)
  - COUGH [None]
  - RHINORRHOEA [None]
